FAERS Safety Report 20878167 (Version 1)
Quarter: 2022Q2

REPORT INFORMATION
  Report Type: Spontaneous
  Country: US (occurrence: US)
  Receive Date: 20220526
  Receipt Date: 20220526
  Transmission Date: 20220721
  Serious: Yes (Other)
  Sender: FDA-Public Use
  Company Number: US-SCA PHARMACEUTICALS-2022SCA00015

PATIENT

DRUGS (3)
  1. BUPIVACAINE\FENTANYL [Suspect]
     Active Substance: BUPIVACAINE\FENTANYL
     Dosage: 8ML/HR, RN BOLUS 8ML Q 30 MIN, MAX 1 HR LIMIT 24ML.
     Route: 064
     Dates: start: 20220421, end: 20220421
  2. VITAMINS [Concomitant]
     Active Substance: VITAMINS
     Route: 064
  3. COLACE [Concomitant]
     Active Substance: DOCUSATE SODIUM
     Route: 064

REACTIONS (2)
  - Tachycardia foetal [Unknown]
  - Foetal exposure during pregnancy [Recovered/Resolved]

NARRATIVE: CASE EVENT DATE: 20220421
